FAERS Safety Report 9144782 (Version 1)
Quarter: 2013Q1

REPORT INFORMATION
  Report Type: Report from Study
  Country: DE (occurrence: DE)
  Receive Date: 20130306
  Receipt Date: 20130306
  Transmission Date: 20140127
  Serious: No
  Sender: FDA-Public Use
  Company Number: PHHY2012DE108315

PATIENT
  Sex: Male
  Weight: 67 kg

DRUGS (21)
  1. AMN107 [Suspect]
     Indication: CHRONIC MYELOID LEUKAEMIA
     Dosage: 800 MG, DAILY
     Route: 048
     Dates: start: 20111110
  2. MUSARIL [Concomitant]
     Dosage: UNK
     Dates: start: 20111116, end: 20111221
  3. BELOC ZOK [Concomitant]
     Dosage: UNK
     Dates: start: 20120714
  4. PREDNISOLON [Concomitant]
     Dosage: 5 MG, UNK
     Dates: start: 20100517, end: 20120515
  5. PREDNISOLON [Concomitant]
     Dosage: 5 UNK, UNK
     Dates: start: 20120727
  6. TILIDIN [Concomitant]
     Dosage: 50 MG, UNK
     Dates: start: 20120515
  7. SIMVASTATIN [Concomitant]
     Dosage: 40 MG, UNK
     Dates: start: 20100902
  8. AQUAPHOR [Concomitant]
     Dosage: 10 MG, UNK
     Dates: start: 20120714
  9. TOREM [Concomitant]
     Dosage: 20 MG, UNK
     Dates: start: 20080410, end: 20120727
  10. FURESIS [Concomitant]
     Dosage: 125 MG, UNK
     Dates: start: 20120727
  11. CARMEN [Concomitant]
     Dosage: UNK
     Dates: start: 20120714
  12. VALSARTAN [Concomitant]
     Dosage: UNK
     Dates: start: 20111221
  13. CYNT [Concomitant]
     Dosage: UNK
     Dates: start: 20120714
  14. OMEPRAZOL [Concomitant]
     Dosage: 40 MG, UNK
     Dates: start: 20061201
  15. ASS [Concomitant]
     Dosage: 100 MG, UNK
     Dates: start: 20100902
  16. EBRANTIL [Concomitant]
     Dosage: UNK
     Dates: start: 20120515, end: 20120714
  17. NEBIVOLOL [Concomitant]
     Dosage: UNK
     Dates: start: 20111221, end: 20120714
  18. BIFITERAL [Concomitant]
     Dosage: UNK
     Dates: start: 20120804
  19. AMLODIPIN [Concomitant]
     Dosage: UNK
     Dates: start: 20120213, end: 20120514
  20. SAROTEN [Concomitant]
     Dosage: UNK
     Dates: start: 20120213, end: 20120514
  21. LYRICA [Concomitant]
     Dosage: UNK
     Dates: start: 20080410, end: 20120514

REACTIONS (6)
  - Anaemia [Not Recovered/Not Resolved]
  - Blood creatinine increased [Not Recovered/Not Resolved]
  - Back pain [Not Recovered/Not Resolved]
  - Bladder hypertrophy [Unknown]
  - Disorientation [Unknown]
  - Urine output decreased [Unknown]
